FAERS Safety Report 12135377 (Version 2)
Quarter: 2016Q2

REPORT INFORMATION
  Report Type: Spontaneous
  Country: US (occurrence: US)
  Receive Date: 20160302
  Receipt Date: 20160415
  Transmission Date: 20160815
  Serious: No
  Sender: FDA-Public Use
  Company Number: US-ASTRAZENECA-2016SE18104

PATIENT
  Age: 24173 Day
  Sex: Male
  Weight: 90.7 kg

DRUGS (5)
  1. PULMICORT FLEXHALER [Suspect]
     Active Substance: BUDESONIDE
     Indication: LUNG INFECTION
     Route: 055
     Dates: start: 20160111
  2. FISH OIL [Concomitant]
     Active Substance: FISH OIL
     Indication: SUPPLEMENTATION THERAPY
     Dosage: DAILY
     Route: 048
  3. VITAMIN E [Concomitant]
     Active Substance: .ALPHA.-TOCOPHEROL
     Indication: SUPPLEMENTATION THERAPY
     Dosage: DAILY
     Route: 048
  4. NEXIUM [Suspect]
     Active Substance: ESOMEPRAZOLE MAGNESIUM
     Indication: GASTROOESOPHAGEAL REFLUX DISEASE
     Dosage: ONCE DAILY
     Route: 048
  5. BABY ASPIRIN [Concomitant]
     Active Substance: ASPIRIN
     Indication: ILL-DEFINED DISORDER
     Dosage: DAILY
     Route: 048

REACTIONS (6)
  - Off label use [Unknown]
  - Pneumonia [Unknown]
  - Malaise [Unknown]
  - Product use issue [Unknown]
  - Wheezing [Unknown]
  - Device failure [Unknown]

NARRATIVE: CASE EVENT DATE: 20150115
